FAERS Safety Report 20099116 (Version 1)
Quarter: 2021Q4

REPORT INFORMATION
  Report Type: Spontaneous
  Country: US (occurrence: None)
  Receive Date: 20211122
  Receipt Date: 20211122
  Transmission Date: 20220303
  Serious: Yes (Other)
  Sender: FDA-Public Use
  Company Number: None

PATIENT
  Age: 29 Year
  Sex: Male
  Weight: 110.25 kg

DRUGS (1)
  1. CASIRIVIMAB\IMDEVIMAB [Suspect]
     Active Substance: CASIRIVIMAB\IMDEVIMAB
     Indication: COVID-19
     Dosage: OTHER FREQUENCY : ONCE;?
     Route: 041
     Dates: start: 20211117, end: 20211117

REACTIONS (8)
  - Nausea [None]
  - Vomiting [None]
  - Pallor [None]
  - Hyperhidrosis [None]
  - Dizziness [None]
  - Vision blurred [None]
  - Eye movement disorder [None]
  - Infusion related reaction [None]

NARRATIVE: CASE EVENT DATE: 20211117
